FAERS Safety Report 19812483 (Version 1)
Quarter: 2021Q3

REPORT INFORMATION
  Report Type: Spontaneous
  Country: CN (occurrence: CN)
  Receive Date: 20210910
  Receipt Date: 20210910
  Transmission Date: 20211014
  Serious: Yes (Other)
  Sender: FDA-Public Use
  Company Number: CN-009507513-2109CHN001389

PATIENT
  Age: 84 Year
  Sex: Male
  Weight: 65 kg

DRUGS (2)
  1. TIENAM [Suspect]
     Active Substance: CILASTATIN SODIUM\IMIPENEM
     Indication: SEPSIS
     Dosage: 2 G, Q8H (ALSO REPORTED AS ONCE A DAY)
     Route: 041
     Dates: start: 20210723, end: 20210724
  2. NS [Concomitant]
     Active Substance: SODIUM CHLORIDE
     Indication: MEDICATION DILUTION
     Dosage: 100 ML, Q8H (ALSO REPORTED AS ONCE A DAY)
     Route: 041
     Dates: start: 20210723, end: 20210724

REACTIONS (10)
  - Altered state of consciousness [Recovering/Resolving]
  - Condition aggravated [Unknown]
  - Loss of consciousness [Recovering/Resolving]
  - Muscle twitching [Unknown]
  - Foaming at mouth [Unknown]
  - Pupillary reflex impaired [Unknown]
  - Product use issue [Unknown]
  - Unresponsive to stimuli [Unknown]
  - Eye movement disorder [Unknown]
  - Pupils unequal [Unknown]

NARRATIVE: CASE EVENT DATE: 20210723
